FAERS Safety Report 8408152-3 (Version None)
Quarter: 2012Q2

REPORT INFORMATION
  Report Type: 
  Country: None (occurrence: None)
  Receive Date: 20120604
  Receipt Date: 20120524
  Transmission Date: 20120825
  Serious: Yes (Other)
  Sender: FDA-Public Use
  Company Number: PHHY2012PT044570

PATIENT
  Age: 76 Year
  Sex: Male

DRUGS (1)
  1. ASPIRIN [Suspect]
     Dosage: 150 MG, DAILY

REACTIONS (2)
  - SUBDURAL HAEMATOMA [None]
  - MOTOR DYSFUNCTION [None]
